FAERS Safety Report 6322350-4 (Version None)
Quarter: 2009Q3

REPORT INFORMATION
  Report Type: 
  Country: None (occurrence: None)
  Receive Date: 20090824
  Receipt Date: 20090304
  Transmission Date: 20100115
  Serious: No
  Sender: FDA-Public Use
  Company Number: US-ABBOTT-09P-163-0501733-00

PATIENT
  Sex: Female
  Weight: 65.83 kg

DRUGS (4)
  1. NIASPAN [Suspect]
     Indication: LOW DENSITY LIPOPROTEIN INCREASED
     Route: 048
     Dates: start: 20090131
  2. NIASPAN [Suspect]
     Route: 048
     Dates: start: 20080701
  3. NIASPAN [Suspect]
     Route: 048
  4. NIASPAN [Suspect]
     Route: 048

REACTIONS (5)
  - FLUSHING [None]
  - HEART RATE INCREASED [None]
  - PALPITATIONS [None]
  - PARAESTHESIA [None]
  - SKIN BURNING SENSATION [None]
